FAERS Safety Report 21244527 (Version 1)
Quarter: 2022Q3

REPORT INFORMATION
  Report Type: Spontaneous
  Country: US (occurrence: None)
  Receive Date: 20220822
  Receipt Date: 20220822
  Transmission Date: 20221027
  Serious: Yes (Death)
  Sender: FDA-Public Use
  Company Number: None

PATIENT
  Sex: Female

DRUGS (1)
  1. BOTOX [Suspect]
     Active Substance: ONABOTULINUMTOXINA
     Indication: Migraine
     Dosage: ?INJECT INTO HEAD AND NECK MUSCLES EVERY 12 WEEKS AS DIRECTED FOR MIGRAINE PREVENTION?
     Dates: start: 20210824, end: 202208

REACTIONS (1)
  - Death [None]
